FAERS Safety Report 7844958-7 (Version None)
Quarter: 2011Q4

REPORT INFORMATION
  Report Type: 
  Country: None (occurrence: None)
  Receive Date: 20111017
  Receipt Date: 20111011
  Transmission Date: 20120403
  Serious: Yes (Hospitalization, Other)
  Sender: FDA-Public Use
  Company Number: 2011SP001281

PATIENT
  Age: 43 Year
  Sex: Female
  Weight: 88.4514 kg

DRUGS (8)
  1. PROPRANOLOL [Concomitant]
  2. NUVARING [Suspect]
     Indication: CONTRACEPTION
     Dosage: ; VAG
     Route: 067
     Dates: start: 20080724, end: 20080905
  3. MIRTAZAPINE [Concomitant]
  4. LEVOTHYROXINE SODIUM [Concomitant]
  5. ZYPREXA [Concomitant]
  6. DIAZEPAM [Concomitant]
  7. LYRICA [Concomitant]
  8. SEROQUEL [Concomitant]

REACTIONS (18)
  - HYPERCHOLESTEROLAEMIA [None]
  - PNEUMONIA [None]
  - MENOMETRORRHAGIA [None]
  - HYPERCOAGULATION [None]
  - VENOUS STENOSIS [None]
  - DYSPNOEA EXERTIONAL [None]
  - IRRITABLE BOWEL SYNDROME [None]
  - MENOPAUSAL SYMPTOMS [None]
  - OEDEMA PERIPHERAL [None]
  - WHEEZING [None]
  - PULMONARY EMBOLISM [None]
  - MENISCUS LESION [None]
  - BARTHOLIN'S CYST [None]
  - DIABETES MELLITUS [None]
  - PSORIASIS [None]
  - ABSCESS [None]
  - DEPRESSION [None]
  - LIGAMENT RUPTURE [None]
